FAERS Safety Report 5278922-1 (Version None)
Quarter: 2007Q1

REPORT INFORMATION
  Report Type: 
  Country: None (occurrence: None)
  Receive Date: 20070328
  Receipt Date: 20070316
  Transmission Date: 20070707
  Serious: Yes (Congenital Anomaly)
  Sender: FDA-Public Use
  Company Number: GB-ROCHE-488644

PATIENT
  Age: 31 Year
  Sex: Female

DRUGS (7)
  1. FUZEON [Suspect]
     Route: 058
  2. CO-TRIMOXAZOLE [Suspect]
     Route: 065
  3. VALGANCICLOVIR HCL [Suspect]
     Route: 065
  4. DIDANOSINE [Suspect]
     Route: 065
     Dates: start: 20040901
  5. LAMIVUDINE [Suspect]
     Route: 065
  6. REYATAZ [Suspect]
     Route: 065
  7. RITONAVIR [Suspect]
     Route: 065

REACTIONS (4)
  - ABORTION SPONTANEOUS [None]
  - INTRA-UTERINE DEATH [None]
  - PLACENTAL INFARCTION [None]
  - UMBILICAL CORD ABNORMALITY [None]
